FAERS Safety Report 22263927 (Version 2)
Quarter: 2023Q2

REPORT INFORMATION
  Report Type: Spontaneous
  Country: VN (occurrence: VN)
  Receive Date: 20230428
  Receipt Date: 20230503
  Transmission Date: 20230721
  Serious: Yes (Other)
  Sender: FDA-Public Use
  Company Number: VN-002147023-NVSC2023VN093371

PATIENT
  Sex: Male

DRUGS (1)
  1. GLIVEC [Suspect]
     Active Substance: IMATINIB MESYLATE
     Indication: Chronic myeloid leukaemia
     Dosage: 400 MG, QD
     Route: 048
     Dates: start: 201703

REACTIONS (5)
  - White blood cell count increased [Recovered/Resolved]
  - Drug intolerance [Unknown]
  - Drug resistance [Unknown]
  - Fatigue [Unknown]
  - Gene mutation identification test positive [Unknown]

NARRATIVE: CASE EVENT DATE: 20170327
